FAERS Safety Report 10298433 (Version 3)
Quarter: 2015Q4

REPORT INFORMATION
  Report Type: Report from Study
  Country: US (occurrence: US)
  Receive Date: 20140711
  Receipt Date: 20151009
  Transmission Date: 20160304
  Serious: Yes (Other)
  Sender: FDA-Public Use
  Company Number: US-SA-2014SA089611

PATIENT
  Age: 31 Year
  Sex: Female

DRUGS (1)
  1. AUBAGIO [Suspect]
     Active Substance: TERIFLUNOMIDE
     Indication: MULTIPLE SCLEROSIS
     Route: 048
     Dates: start: 20140609, end: 20140614

REACTIONS (7)
  - Central nervous system lesion [Unknown]
  - CSF myelin basic protein [Recovering/Resolving]
  - Malaise [Unknown]
  - Vomiting [Recovered/Resolved]
  - Optic neuritis [Recovering/Resolving]
  - Cerebral disorder [Recovering/Resolving]
  - Diarrhoea [Recovered/Resolved]

NARRATIVE: CASE EVENT DATE: 2014
